FAERS Safety Report 25594505 (Version 3)
Quarter: 2025Q4

REPORT INFORMATION
  Report Type: Spontaneous
  Country: US (occurrence: US)
  Receive Date: 20250723
  Receipt Date: 20251216
  Transmission Date: 20260117
  Serious: Yes (Hospitalization, Other)
  Sender: BRISTOL-MYERS SQUIBB COMPANY
  Company Number: US-BRISTOL-MYERS SQUIBB COMPANY-2025-102687

PATIENT
  Age: 85 Year
  Sex: Female
  Weight: 63.96 kg

DRUGS (2)
  1. POMALYST [Suspect]
     Active Substance: POMALIDOMIDE
     Indication: Plasma cell myeloma
     Dosage: ONCE DAILY ON DAY 1-21 OF EACH 28 DAYS CYCLE
     Route: 048
     Dates: start: 20250629
  2. POMALYST [Suspect]
     Active Substance: POMALIDOMIDE
     Dosage: DAILY FOR 21 DAYS AND 7 DAYS OFF?3 WEEKS ON , 1 WEEK OFF
     Route: 048

REACTIONS (4)
  - Blood disorder [Unknown]
  - Haemoglobin decreased [Recovering/Resolving]
  - Urinary tract infection [Recovering/Resolving]
  - Blood iron decreased [Recovering/Resolving]

NARRATIVE: CASE EVENT DATE: 20250701
